FAERS Safety Report 12991010 (Version 1)
Quarter: 2016Q4

REPORT INFORMATION
  Report Type: Spontaneous
  Country: US (occurrence: US)
  Receive Date: 20161201
  Receipt Date: 20161201
  Transmission Date: 20170207
  Serious: Yes (Hospitalization, Disabling, Other)
  Sender: FDA-Public Use
  Company Number: None

PATIENT
  Age: 52 Year
  Sex: Female
  Weight: 68.1 kg

DRUGS (3)
  1. U-TUBE INSERTION [Suspect]
     Active Substance: DEVICE
  2. ANTIBIOTICS [Concomitant]
     Active Substance: UNSPECIFIED INGREDIENT
  3. HALDOL [Suspect]
     Active Substance: HALOPERIDOL
     Indication: PRODUCT USED FOR UNKNOWN INDICATION
     Dosage: DECK SHOT TWICE DAILY, MOUTH, INJECTION, LEFT EA?
     Route: 048
     Dates: start: 20150203, end: 20160716

REACTIONS (10)
  - Vomiting [None]
  - Blood pressure increased [None]
  - Weight increased [None]
  - Dysphagia [None]
  - Pain [None]
  - Palpitations [None]
  - Hypoacusis [None]
  - Haemorrhage [None]
  - Retching [None]
  - Device related infection [None]

NARRATIVE: CASE EVENT DATE: 20150203
